FAERS Safety Report 20590232 (Version 1)
Quarter: 2022Q1

REPORT INFORMATION
  Report Type: Spontaneous
  Country: US (occurrence: None)
  Receive Date: 20220312
  Receipt Date: 20220312
  Transmission Date: 20220423
  Serious: Yes (unspecified)
  Sender: FDA-Public Use
  Company Number: None

PATIENT
  Age: 49 Year
  Sex: Female
  Weight: 65.25 kg

DRUGS (2)
  1. OZEMPIC [Suspect]
     Active Substance: SEMAGLUTIDE
     Indication: Diabetes mellitus
     Dosage: OTHER QUANTITY : 1 INJECTION(S);?OTHER FREQUENCY : ONCE EVERY 7 DAYS;?
     Route: 058
     Dates: start: 20220228, end: 20220301
  2. Burdock root tea Lemon and ginger tea [Concomitant]

REACTIONS (11)
  - Muscle spasms [None]
  - Nausea [None]
  - Vomiting [None]
  - Diarrhoea [None]
  - Chest pain [None]
  - Abdominal pain [None]
  - Dyspnoea [None]
  - Hypophagia [None]
  - Asthenia [None]
  - Feeling abnormal [None]
  - Dysstasia [None]

NARRATIVE: CASE EVENT DATE: 20220304
